FAERS Safety Report 4374350-1 (Version None)
Quarter: 2004Q2

REPORT INFORMATION
  Report Type: 
  Country: None (occurrence: None)
  Receive Date: 20040608
  Receipt Date: 20040608
  Transmission Date: 20050107
  Serious: Yes (Disabling)
  Sender: FDA-Public Use
  Company Number: None

PATIENT
  Age: 45 Year
  Sex: Female
  Weight: 113.3993 kg

DRUGS (6)
  1. LITHIUM [Suspect]
     Indication: BIPOLAR DISORDER
     Dosage: DAILY
     Dates: start: 19850901, end: 19950625
  2. VITAMIN D [Concomitant]
  3. DIOVAN [Concomitant]
  4. LITHIUM CARBONATE [Concomitant]
  5. DILANTIN [Concomitant]
  6. CARBAMAZEPINE [Concomitant]

REACTIONS (8)
  - DIABETES INSIPIDUS [None]
  - GOUT [None]
  - HEPATITIS [None]
  - HYPERTENSION [None]
  - LUPUS-LIKE SYNDROME [None]
  - RENAL DISORDER [None]
  - TRANSIENT ISCHAEMIC ATTACK [None]
  - VITAMIN D DEFICIENCY [None]
